FAERS Safety Report 6718677-4 (Version None)
Quarter: 2010Q2

REPORT INFORMATION
  Report Type: 
  Country: None (occurrence: None)
  Receive Date: 20100506
  Receipt Date: 20100427
  Transmission Date: 20101027
  Serious: No
  Sender: FDA-Public Use
  Company Number: COM10-0582

PATIENT
  Sex: Female

DRUGS (2)
  1. PHENTERMINE [Suspect]
     Indication: WEIGHT CONTROL
     Dosage: 37.5MG, 1 X DAY, ORAL
     Route: 048
     Dates: start: 20070821, end: 20081001
  2. PHENTERMINE [Suspect]

REACTIONS (2)
  - ANEURYSM [None]
  - SPLEEN DISORDER [None]
